FAERS Safety Report 4547862-5 (Version None)
Quarter: 2004Q4

REPORT INFORMATION
  Report Type: 
  Country: None (occurrence: None)
  Receive Date: 20041227
  Receipt Date: 20041118
  Transmission Date: 20050328
  Serious: No
  Sender: FDA-Public Use
  Company Number: 04P-163-0280903-00

PATIENT
  Age: 71 Year
  Sex: Female
  Weight: 39.9165 kg

DRUGS (9)
  1. HUMIRA [Suspect]
     Indication: RHEUMATOID ARTHRITIS
     Dosage: 40 MG, 1 IN 2 WK, SUBCUTANEOUS
     Route: 058
     Dates: start: 20040601, end: 20040901
  2. HYDROMORPHONE HYDROCHLORIDE [Concomitant]
  3. PREDNISONE [Concomitant]
  4. NAPROXEN [Concomitant]
  5. METHADONE HCL [Concomitant]
  6. METHYLPHENIDATE HCL [Concomitant]
  7. GABAPENTIN [Concomitant]
  8. ALENDRONATE SODIUM [Concomitant]
  9. METHOTREXATE [Concomitant]

REACTIONS (1)
  - SKIN OEDEMA [None]
